FAERS Safety Report 5270816-0 (Version None)
Quarter: 2007Q2

REPORT INFORMATION
  Report Type: 
  Country: None (occurrence: None)
  Receive Date: 20070321
  Receipt Date: 20070319
  Transmission Date: 20071010
  Serious: Yes (Other)
  Sender: FDA-Public Use
  Company Number: TR-BRISTOL-MYERS SQUIBB COMPANY-13718952

PATIENT
  Age: 15 Month
  Sex: Male

DRUGS (6)
  1. AMIKACIN SULFATE [Suspect]
     Indication: BRONCHOPNEUMONIA
  2. AMIKACIN SULFATE [Suspect]
     Indication: SEPSIS
  3. VANCOMYCIN [Suspect]
     Indication: BRONCHOPNEUMONIA
  4. VANCOMYCIN [Suspect]
     Indication: SEPSIS
  5. CEFOTAXIME SODIUM [Suspect]
     Indication: BRONCHOPNEUMONIA
  6. CEFOTAXIME SODIUM [Suspect]
     Indication: SEPSIS

REACTIONS (1)
  - DRUG RASH WITH EOSINOPHILIA AND SYSTEMIC SYMPTOMS [None]
